FAERS Safety Report 21920175 (Version 5)
Quarter: 2023Q2

REPORT INFORMATION
  Report Type: Report from Study
  Country: AU (occurrence: AU)
  Receive Date: 20230127
  Receipt Date: 20230630
  Transmission Date: 20230721
  Serious: Yes (Life-Threatening)
  Sender: FDA-Public Use
  Company Number: AU-002147023-NVSC2022AU285635

PATIENT
  Age: 73 Year
  Sex: Male

DRUGS (3)
  1. KESIMPTA [Suspect]
     Active Substance: OFATUMUMAB
     Indication: Relapsing-remitting multiple sclerosis
     Dosage: 20 MG, QMO
     Route: 058
     Dates: start: 20221028
  2. KESIMPTA [Suspect]
     Active Substance: OFATUMUMAB
     Dosage: UNK
     Route: 058
     Dates: start: 20230127
  3. KESIMPTA [Suspect]
     Active Substance: OFATUMUMAB
     Dosage: 20 MG, QMO
     Route: 058
     Dates: start: 20230629

REACTIONS (12)
  - Feeling abnormal [Unknown]
  - Lethargy [Unknown]
  - Insomnia [Unknown]
  - Palpitations [Unknown]
  - Balance disorder [Unknown]
  - Gait disturbance [Recovering/Resolving]
  - Fall [Unknown]
  - Arthralgia [Unknown]
  - Asthenia [Unknown]
  - Dyspnoea [Unknown]
  - Inappropriate schedule of product administration [Unknown]
  - Drug ineffective [Unknown]

NARRATIVE: CASE EVENT DATE: 20230629
